FAERS Safety Report 8170234-1 (Version None)
Quarter: 2012Q1

REPORT INFORMATION
  Report Type: 
  Country: None (occurrence: None)
  Receive Date: 20120228
  Receipt Date: 20120218
  Transmission Date: 20120608
  Serious: Yes (Other)
  Sender: FDA-Public Use
  Company Number: PHEH2011US009446

PATIENT
  Sex: Female

DRUGS (3)
  1. NEORAL [Suspect]
     Indication: RENAL DISORDER
     Dosage: 125 MG, BID
  2. AMLODIPINE [Suspect]
     Dosage: 5 MG, QD
  3. TACROLIMUS [Suspect]

REACTIONS (9)
  - FLUID RETENTION [None]
  - SWOLLEN TONGUE [None]
  - DYSPNOEA [None]
  - CONSTIPATION [None]
  - ANURIA [None]
  - DYSURIA [None]
  - OEDEMA PERIPHERAL [None]
  - DRUG HYPERSENSITIVITY [None]
  - PHARYNGEAL OEDEMA [None]
